FAERS Safety Report 4933153-7 (Version None)
Quarter: 2006Q1

REPORT INFORMATION
  Report Type: 
  Country: None (occurrence: None)
  Receive Date: 20060118
  Receipt Date: 20051109
  Transmission Date: 20060701
  Serious: Yes (Other)
  Sender: FDA-Public Use
  Company Number: US-JNJFOC-20051102634

PATIENT
  Age: 47 Year
  Sex: Female
  Weight: 79.3795 kg

DRUGS (2)
  1. DOXIL [Suspect]
     Indication: BREAST CANCER
     Dosage: INTRAVENOUS
     Route: 042
     Dates: start: 20050601
  2. TAXOTERE [Concomitant]

REACTIONS (5)
  - ASTHENIA [None]
  - HEART RATE INCREASED [None]
  - LEUKOPENIA [None]
  - THYROID DISORDER [None]
  - WEIGHT DECREASED [None]
